FAERS Safety Report 9291501 (Version 1)
Quarter: 2013Q2

REPORT INFORMATION
  Report Type: Spontaneous
  Country: US (occurrence: US)
  Receive Date: 20130515
  Receipt Date: 20130515
  Transmission Date: 20140414
  Serious: No
  Sender: FDA-Public Use
  Company Number: US-009507513-1305USA008535

PATIENT
  Age: 55 Year
  Sex: Male

DRUGS (9)
  1. REMERON [Suspect]
     Indication: AGGRESSION
     Dosage: 15 MG, HS
     Route: 048
     Dates: start: 20130507, end: 20130508
  2. REMERON [Suspect]
     Indication: DEPRESSION
  3. LITHIUM [Concomitant]
  4. OMEPRAZOLE [Concomitant]
  5. ADVAIR [Concomitant]
  6. SPIRIVA [Concomitant]
  7. COUMADIN [Concomitant]
  8. VALIUM [Concomitant]
  9. XANAX [Concomitant]

REACTIONS (5)
  - Coordination abnormal [Recovered/Resolved]
  - Fall [Recovered/Resolved]
  - Vision blurred [Recovered/Resolved]
  - Tremor [Recovered/Resolved]
  - Abnormal dreams [Recovered/Resolved]
